FAERS Safety Report 10227041 (Version 4)
Quarter: 2014Q3

REPORT INFORMATION
  Report Type: Spontaneous
  Country: JP (occurrence: JP)
  Receive Date: 20140610
  Receipt Date: 20140916
  Transmission Date: 20150326
  Serious: Yes (Other)
  Sender: FDA-Public Use
  Company Number: JP-009507513-1405JPN012684

PATIENT
  Age: 81 Year
  Sex: Female

DRUGS (1)
  1. TOREMIFENE CITRATE [Suspect]
     Active Substance: TOREMIFENE CITRATE
     Indication: BREAST CANCER
     Dosage: 40 MG, QD (40MG, 1 D)
     Route: 048
     Dates: start: 20080908, end: 20130214

REACTIONS (3)
  - Colon cancer [Unknown]
  - Endometrial hyperplasia [Recovering/Resolving]
  - Endometrial hypertrophy [Recovering/Resolving]
